FAERS Safety Report 10372981 (Version 1)
Quarter: 2014Q3

REPORT INFORMATION
  Report Type: Spontaneous
  Country: US (occurrence: US)
  Receive Date: 20140808
  Receipt Date: 20140808
  Transmission Date: 20150326
  Serious: Yes (Death, Hospitalization, Other)
  Sender: FDA-Public Use
  Company Number: US-B.I. PHARMACEUTICALS,INC./RIDGEFIELD-2014-BI-35491BP

PATIENT
  Age: 82 Year
  Sex: Female

DRUGS (7)
  1. PRADAXA [Suspect]
     Active Substance: DABIGATRAN ETEXILATE MESYLATE
     Indication: ARRHYTHMIA
     Dosage: 300 MG
     Route: 048
     Dates: end: 20130609
  2. LASIX [Concomitant]
     Active Substance: FUROSEMIDE
     Dosage: 40 MG
     Route: 048
  3. DILTIAZEM [Concomitant]
     Active Substance: DILTIAZEM
     Dosage: 120 MG
     Route: 048
  4. POTASSIUM CHLORIDE. [Concomitant]
     Active Substance: POTASSIUM CHLORIDE
     Dosage: 10 MEQ
     Route: 048
  5. KREBS MAGNESIUM POTASSIUM [Concomitant]
     Route: 065
  6. ARMOUR THYROID [Concomitant]
     Active Substance: THYROID, PORCINE\THYROID, UNSPECIFIED
     Dosage: 60 MG
     Route: 048
  7. NATROKINASE [Concomitant]
     Dosage: 100 MG
     Route: 065

REACTIONS (9)
  - Facial bones fracture [Unknown]
  - Coagulopathy [Unknown]
  - Fall [Unknown]
  - Ulna fracture [Unknown]
  - Pubis fracture [Unknown]
  - Craniocerebral injury [Fatal]
  - Haemorrhage intracranial [Fatal]
  - Pelvic haematoma [Unknown]
  - Radius fracture [Unknown]

NARRATIVE: CASE EVENT DATE: 20130610
